FAERS Safety Report 23744249 (Version 1)
Quarter: 2024Q2

REPORT INFORMATION
  Report Type: Spontaneous
  Country: US (occurrence: US)
  Receive Date: 20240415
  Receipt Date: 20240415
  Transmission Date: 20240715
  Serious: Yes (Hospitalization, Other)
  Sender: FDA-Public Use
  Company Number: US-SUN PHARMACEUTICAL INDUSTRIES LTD-2024R1-440708

PATIENT
  Age: 39 Year

DRUGS (2)
  1. LORAZEPAM [Suspect]
     Active Substance: LORAZEPAM
     Indication: Anorexia nervosa
     Dosage: 2 MILLIGRAM, QD
     Route: 065
  2. OLANZAPINE [Suspect]
     Active Substance: OLANZAPINE
     Indication: Anorexia nervosa
     Dosage: 10 MILLIGRAM, QD
     Route: 065

REACTIONS (3)
  - Condition aggravated [Unknown]
  - Suicidal ideation [Unknown]
  - Weight increased [Unknown]
